FAERS Safety Report 7232517-9 (Version None)
Quarter: 2011Q1

REPORT INFORMATION
  Report Type: 
  Country: None (occurrence: None)
  Receive Date: 20110105
  Receipt Date: 20101207
  Transmission Date: 20110831
  Serious: Yes (Hospitalization, Other)
  Sender: FDA-Public Use
  Company Number: 20100568

PATIENT
  Age: 26 Year
  Sex: Female

DRUGS (3)
  1. PROPOFOL [Concomitant]
  2. LIDOCAINE HCL [Suspect]
     Indication: NERVE BLOCK
     Dosage: 40 CC INJECTION NOS
  3. FENTANYL [Concomitant]

REACTIONS (3)
  - NYSTAGMUS [None]
  - OVERDOSE [None]
  - GRAND MAL CONVULSION [None]
